FAERS Safety Report 14901050 (Version 1)
Quarter: 2018Q2

REPORT INFORMATION
  Report Type: Spontaneous
  Country: US (occurrence: US)
  Receive Date: 20180429
  Receipt Date: 20180429
  Transmission Date: 20180711
  Serious: Yes (Hospitalization)
  Sender: FDA-Public Use
  Company Number: None

PATIENT
  Age: 62 Year
  Sex: Male
  Weight: 79.65 kg

DRUGS (1)
  1. LITHIUM. [Suspect]
     Active Substance: LITHIUM
     Indication: BIPOLAR I DISORDER
     Route: 048
     Dates: start: 20170712, end: 20170831

REACTIONS (8)
  - Hypokalaemia [None]
  - Haematocrit decreased [None]
  - Acute kidney injury [None]
  - Hyponatraemia [None]
  - Tremor [None]
  - Muscle twitching [None]
  - Dizziness [None]
  - Haemoglobin decreased [None]

NARRATIVE: CASE EVENT DATE: 20170829
